FAERS Safety Report 8606144 (Version 2)
Quarter: 2012Q4

REPORT INFORMATION
  Report Type: 
  Country: US (occurrence: US)
  Receive Date: 20120608
  Receipt Date: 20121129
  Transmission Date: 20130627
  Serious: No
  Sender: FDA-Public Use
  Company Number: US-ASTRAZENECA-2011SE26811

PATIENT
  Age: 78 Year
  Sex: Male

DRUGS (1)
  1. ATACAND [Suspect]
     Route: 048

REACTIONS (4)
  - Hearing impaired [Unknown]
  - Hypoacusis [Unknown]
  - Deafness [Unknown]
  - Deafness [Unknown]
